FAERS Safety Report 6090135-2 (Version None)
Quarter: 2009Q1

REPORT INFORMATION
  Report Type: 
  Country: None (occurrence: None)
  Receive Date: 20090224
  Receipt Date: 20081211
  Transmission Date: 20090719
  Serious: No
  Sender: FDA-Public Use
  Company Number: US-ABBOTT-08P-163-0492750-00

PATIENT
  Sex: Male

DRUGS (2)
  1. SIMCOR [Suspect]
     Indication: DRUG USE FOR UNKNOWN INDICATION
     Dosage: 1000/20 MG DAILY AT BEDTIME
     Route: 048
  2. SIMCOR [Suspect]
     Dosage: 500/20 MG DAILY AT BEDTIME
     Route: 048

REACTIONS (2)
  - FEELING HOT [None]
  - FLUSHING [None]
